FAERS Safety Report 6011555-8 (Version None)
Quarter: 2008Q4

REPORT INFORMATION
  Report Type: 
  Country: None (occurrence: None)
  Receive Date: 20081218
  Receipt Date: 20080910
  Transmission Date: 20090506
  Serious: No
  Sender: FDA-Public Use
  Company Number: US-ASTRAZENECA-2008UW18736

PATIENT
  Age: 69 Year
  Sex: Male
  Weight: 83.5 kg

DRUGS (3)
  1. CRESTOR [Suspect]
     Indication: BLOOD CHOLESTEROL INCREASED
     Route: 048
     Dates: start: 20080901
  2. ASPIRIN [Concomitant]
  3. FISH OIL [Concomitant]

REACTIONS (2)
  - BACK PAIN [None]
  - DIARRHOEA [None]
